FAERS Safety Report 13053022 (Version 2)
Quarter: 2017Q1

REPORT INFORMATION
  Report Type: Spontaneous
  Country: OM (occurrence: OM)
  Receive Date: 20161222
  Receipt Date: 20170112
  Transmission Date: 20170428
  Serious: Yes (Life-Threatening, Other)
  Sender: FDA-Public Use
  Company Number: OM-ROCHE-1870882

PATIENT
  Age: 36 Year
  Sex: Female
  Weight: 77 kg

DRUGS (8)
  1. CHLORPHENIRAMIN [Concomitant]
     Dosage: PRE/POST CHEMO
     Route: 065
  2. DOCETAXEL. [Concomitant]
     Active Substance: DOCETAXEL
     Dosage: DOSE: 75/M2 (140MG)
     Route: 042
     Dates: start: 20160920, end: 20161208
  3. DEXAMETHASONE. [Concomitant]
     Active Substance: DEXAMETHASONE
     Dosage: PRE/POST CHEMO
     Route: 065
  4. RANITIDINE. [Concomitant]
     Active Substance: RANITIDINE
     Dosage: PRE/POST CHEMO
     Route: 065
  5. GRANISETRON [Concomitant]
     Active Substance: GRANISETRON
     Dosage: PRE/POST CHEMO
     Route: 065
  6. HERCEPTIN [Suspect]
     Active Substance: TRASTUZUMAB
     Indication: HER-2 POSITIVE BREAST CANCER
     Dosage: 528 MG
     Route: 042
     Dates: start: 20160920, end: 20161106
  7. CYCLOPHOSPHAMIDE. [Concomitant]
     Active Substance: CYCLOPHOSPHAMIDE
  8. PERJETA [Suspect]
     Active Substance: PERTUZUMAB
     Indication: HER-2 POSITIVE BREAST CANCER
     Route: 042
     Dates: start: 20160920, end: 20161106

REACTIONS (3)
  - Cardiomyopathy [Not Recovered/Not Resolved]
  - Ventricular tachycardia [Recovered/Resolved]
  - Ejection fraction decreased [Unknown]

NARRATIVE: CASE EVENT DATE: 20161121
